FAERS Safety Report 6039753-8 (Version None)
Quarter: 2009Q1

REPORT INFORMATION
  Report Type: 
  Country: None (occurrence: None)
  Receive Date: 20090116
  Receipt Date: 20090108
  Transmission Date: 20090719
  Serious: Yes (Hospitalization, Disabling)
  Sender: FDA-Public Use
  Company Number: PHHO2009EG00571

PATIENT
  Sex: Male

DRUGS (3)
  1. ALISKIREN ALI+TAB [Suspect]
     Indication: ESSENTIAL HYPERTENSION
     Dosage: 300 MG
     Dates: start: 20081030, end: 20090107
  2. AMLODIPINE [Suspect]
     Indication: ESSENTIAL HYPERTENSION
     Dosage: 10 MG
     Dates: start: 20081030, end: 20090107
  3. HYDROCHLOROTHIAZIDE T08766+CAPS [Suspect]
     Indication: ESSENTIAL HYPERTENSION
     Dosage: 25 MG
     Dates: start: 20081030, end: 20090107

REACTIONS (5)
  - CEREBROVASCULAR ACCIDENT [None]
  - DRUG INEFFECTIVE [None]
  - FAECAL INCONTINENCE [None]
  - HEMIPARESIS [None]
  - URINARY INCONTINENCE [None]
